FAERS Safety Report 13334609 (Version 2)
Quarter: 2017Q1

REPORT INFORMATION
  Report Type: Spontaneous
  Country: JP (occurrence: JP)
  Receive Date: 20170314
  Receipt Date: 20170321
  Transmission Date: 20170428
  Serious: Yes (Hospitalization)
  Sender: FDA-Public Use
  Company Number: JP-ALLERGAN-1709617US

PATIENT
  Age: 62 Year
  Sex: Female

DRUGS (1)
  1. MILNACIPRAN - BP [Suspect]
     Active Substance: MILNACIPRAN
     Indication: DEPRESSION
     Dosage: 25 MG, QD
     Route: 065

REACTIONS (3)
  - Mechanical ileus [Unknown]
  - Suicide attempt [Unknown]
  - Irritability [Unknown]
